FAERS Safety Report 5082169-1 (Version None)
Quarter: 2006Q3

REPORT INFORMATION
  Report Type: 
  Country: None (occurrence: None)
  Receive Date: 20060814
  Receipt Date: 20060427
  Transmission Date: 20061208
  Serious: Yes (Other)
  Sender: FDA-Public Use
  Company Number: CHNY2006BR01423

PATIENT
  Age: 19 Year
  Sex: Female
  Weight: 50 kg

DRUGS (1)
  1. CIBALENA (NCH) (CAFFEINE CITRATE, ACETYLSALICYLIC ACID, ACETAMINOPHEN [Suspect]
     Indication: HEADACHE
     Dosage: 3 TIMES DAILY, ORAL
     Route: 048
     Dates: start: 20060425

REACTIONS (3)
  - ABDOMINAL PAIN [None]
  - TREMOR [None]
  - VOMITING [None]
